FAERS Safety Report 10554264 (Version 2)
Quarter: 2014Q4

REPORT INFORMATION
  Report Type: Spontaneous
  Country: US (occurrence: US)
  Receive Date: 20141030
  Receipt Date: 20141216
  Transmission Date: 20150529
  Serious: No
  Sender: FDA-Public Use
  Company Number: US-PFIZER INC-2014294168

PATIENT
  Age: 62 Year
  Sex: Female

DRUGS (1)
  1. CAVERJECT [Suspect]
     Active Substance: ALPROSTADIL
     Dosage: 1 DF, AS NEEDED

REACTIONS (2)
  - Off label use [Unknown]
  - Drug ineffective [Unknown]
